FAERS Safety Report 10567231 (Version 3)
Quarter: 2014Q4

REPORT INFORMATION
  Report Type: Report from Study
  Country: CA (occurrence: CA)
  Receive Date: 20141105
  Receipt Date: 20141216
  Transmission Date: 20150529
  Serious: Yes (Death, Hospitalization)
  Sender: FDA-Public Use
  Company Number: CA-ABBVIE-14P-028-1303892-00

PATIENT
  Age: 82 Year
  Sex: Male
  Weight: 70 kg

DRUGS (1)
  1. LUPRON DEPOT [Suspect]
     Active Substance: LEUPROLIDE ACETATE
     Indication: PROSTATE CANCER
     Route: 030
     Dates: end: 20141002

REACTIONS (6)
  - Prostate cancer [Fatal]
  - Diarrhoea [Unknown]
  - Pain [Unknown]
  - Haematochezia [Unknown]
  - Hospitalisation [Unknown]
  - Gastrointestinal haemorrhage [Unknown]

NARRATIVE: CASE EVENT DATE: 20141028
